FAERS Safety Report 6437188-7 (Version None)
Quarter: 2009Q4

REPORT INFORMATION
  Report Type: 
  Country: None (occurrence: None)
  Receive Date: 20091112
  Receipt Date: 20091109
  Transmission Date: 20100525
  Serious: Yes (Hospitalization)
  Sender: FDA-Public Use
  Company Number: US-ROCHE-636268

PATIENT
  Sex: Male

DRUGS (5)
  1. CAPECITABINE [Suspect]
     Indication: METASTATIC NEOPLASM
     Route: 048
     Dates: start: 20090429, end: 20090514
  2. BRIVANIB ALANINATE [Suspect]
     Indication: METASTATIC NEOPLASM
     Route: 048
     Dates: start: 20090422, end: 20090514
  3. AMRIX [Concomitant]
     Dates: start: 20040101
  4. NAPROSYN [Concomitant]
     Dates: start: 20040101
  5. HYDROCORTISONE [Concomitant]
     Dates: start: 20040101

REACTIONS (3)
  - ANAEMIA [None]
  - GASTROINTESTINAL HAEMORRHAGE [None]
  - INTESTINAL OBSTRUCTION [None]
